FAERS Safety Report 9709409 (Version 39)
Quarter: 2018Q1

REPORT INFORMATION
  Report Type: Report from Study
  Country: CA (occurrence: CA)
  Receive Date: 20131126
  Receipt Date: 20180109
  Transmission Date: 20180509
  Serious: Yes (Other)
  Sender: FDA-Public Use
  Company Number: CA-ROCHE-1134838

PATIENT
  Age: 38 Year
  Sex: Female
  Weight: 91.5 kg

DRUGS (15)
  1. ACTEMRA [Suspect]
     Active Substance: TOCILIZUMAB
     Indication: RHEUMATOID ARTHRITIS
     Route: 042
     Dates: start: 20120719
  2. ACTEMRA [Suspect]
     Active Substance: TOCILIZUMAB
     Route: 042
     Dates: start: 20161107
  3. ACTEMRA [Suspect]
     Active Substance: TOCILIZUMAB
     Indication: RHEUMATOID ARTHRITIS
     Route: 042
     Dates: start: 20130517
  4. ACTEMRA [Suspect]
     Active Substance: TOCILIZUMAB
     Route: 042
     Dates: start: 20151021
  5. ACTEMRA [Suspect]
     Active Substance: TOCILIZUMAB
     Route: 042
     Dates: start: 20150219
  6. PREDNISONE. [Suspect]
     Active Substance: PREDNISONE
     Indication: PRODUCT USED FOR UNKNOWN INDICATION
     Route: 065
  7. CARBOCAL [Concomitant]
     Active Substance: CALCIUM CARBONATE
  8. AVAPRO [Concomitant]
     Active Substance: IRBESARTAN
  9. ACTEMRA [Suspect]
     Active Substance: TOCILIZUMAB
     Route: 042
     Dates: start: 20131223
  10. ARAVA [Concomitant]
     Active Substance: LEFLUNOMIDE
  11. ACTEMRA [Suspect]
     Active Substance: TOCILIZUMAB
     Dosage: START DATE: AFTER TWO WEEKS OF 24/JUL/2015
     Route: 042
  12. ACTEMRA [Suspect]
     Active Substance: TOCILIZUMAB
     Route: 042
     Dates: start: 20150219, end: 20150324
  13. ACTEMRA [Suspect]
     Active Substance: TOCILIZUMAB
     Indication: RHEUMATOID ARTHRITIS
     Route: 058
     Dates: start: 20150508, end: 201507
  14. ACTONEL [Concomitant]
     Active Substance: RISEDRONATE SODIUM
  15. ACTEMRA [Suspect]
     Active Substance: TOCILIZUMAB
     Route: 042
     Dates: start: 20170802

REACTIONS (44)
  - Intervertebral disc protrusion [Not Recovered/Not Resolved]
  - Arthralgia [Not Recovered/Not Resolved]
  - Haemorrhoids [Unknown]
  - Gastroenteritis [Not Recovered/Not Resolved]
  - Pain [Not Recovered/Not Resolved]
  - Dysphagia [Not Recovered/Not Resolved]
  - Injection site pruritus [Unknown]
  - Oedema peripheral [Not Recovered/Not Resolved]
  - Foot fracture [Unknown]
  - Diarrhoea [Not Recovered/Not Resolved]
  - Nasopharyngitis [Recovered/Resolved]
  - Infusion related reaction [Unknown]
  - Fall [Unknown]
  - Drug ineffective [Unknown]
  - Dizziness [Not Recovered/Not Resolved]
  - Fatigue [Not Recovered/Not Resolved]
  - Procedural pain [Not Recovered/Not Resolved]
  - Ovarian cyst [Not Recovered/Not Resolved]
  - Alveolar osteitis [Not Recovered/Not Resolved]
  - Urinary tract infection [Recovered/Resolved]
  - Arthritis [Recovered/Resolved]
  - Abdominal pain upper [Recovering/Resolving]
  - Pain in extremity [Not Recovered/Not Resolved]
  - Postoperative wound infection [Not Recovered/Not Resolved]
  - Musculoskeletal stiffness [Not Recovered/Not Resolved]
  - Migraine [Not Recovered/Not Resolved]
  - Rheumatoid arthritis [Not Recovered/Not Resolved]
  - Weight decreased [Recovered/Resolved]
  - Wound [Unknown]
  - Menometrorrhagia [Not Recovered/Not Resolved]
  - Arthritis [Not Recovered/Not Resolved]
  - Malaise [Not Recovered/Not Resolved]
  - Blood pressure increased [Unknown]
  - Tooth fracture [Unknown]
  - Musculoskeletal stiffness [Not Recovered/Not Resolved]
  - Injection site erythema [Unknown]
  - Fatigue [Recovering/Resolving]
  - Dry throat [Not Recovered/Not Resolved]
  - Weight increased [Unknown]
  - Nasopharyngitis [Recovered/Resolved]
  - Nausea [Not Recovered/Not Resolved]
  - Insomnia [Not Recovered/Not Resolved]
  - Gait disturbance [Not Recovered/Not Resolved]
  - Lymphadenopathy [Not Recovered/Not Resolved]

NARRATIVE: CASE EVENT DATE: 201208
